FAERS Safety Report 15091392 (Version 1)
Quarter: 2018Q2

REPORT INFORMATION
  Report Type: Spontaneous
  Country: ES (occurrence: ES)
  Receive Date: 20180629
  Receipt Date: 20180629
  Transmission Date: 20180711
  Serious: Yes (Other)
  Sender: FDA-Public Use
  Company Number: ES-PFIZER INC-2018257226

PATIENT
  Age: 36 Year
  Sex: Female
  Weight: 67 kg

DRUGS (5)
  1. OMEPRAZOL CINFA [Concomitant]
     Dosage: 20 MG, DAILY
     Route: 048
     Dates: start: 20161130
  2. ACIDO ZOLEDRONICO ACCORD [Concomitant]
     Dosage: 4 MG, CYCLIC (EACH 28 DAYS)
     Route: 042
     Dates: start: 20161202
  3. IBRANCE [Suspect]
     Active Substance: PALBOCICLIB
     Indication: BREAST CANCER FEMALE
     Dosage: 125 MG, CYCLIC (DAILY 21 DAYS ON 1 WEEK OFF)
     Route: 048
     Dates: start: 20180323, end: 20180412
  4. FASLODEX [Suspect]
     Active Substance: FULVESTRANT
     Indication: BREAST CANCER
     Dosage: 500 MG, CYCLIC (EACH 25 DAYS)
     Route: 030
     Dates: start: 20180323, end: 20180427
  5. DUROGESIC [Concomitant]
     Active Substance: FENTANYL
     Dosage: 25 UG/H
     Route: 062
     Dates: start: 20171010

REACTIONS (1)
  - Hypertransaminasaemia [Recovered/Resolved]

NARRATIVE: CASE EVENT DATE: 20180423
